FAERS Safety Report 25379762 (Version 1)
Quarter: 2025Q2

REPORT INFORMATION
  Report Type: Spontaneous
  Country: IT (occurrence: IT)
  Receive Date: 20250530
  Receipt Date: 20250530
  Transmission Date: 20250717
  Serious: Yes (Life-Threatening, Hospitalization)
  Sender: NOVARTIS
  Company Number: None

PATIENT
  Age: 70 Year
  Sex: Male
  Weight: 70 kg

DRUGS (9)
  1. MEKINIST [Suspect]
     Active Substance: TRAMETINIB DIMETHYL SULFOXIDE
     Indication: Lung adenocarcinoma stage I
     Dosage: 2 MG, QD, (2 MG 1 CP ORE 8 LONTANO DAI PASTI)
     Route: 048
     Dates: start: 20250211, end: 20250426
  2. TAFINLAR [Suspect]
     Active Substance: DABRAFENIB MESYLATE
     Indication: Lung adenocarcinoma stage IV
     Dosage: 75 MG, Q12H, (75 MG 2 CP ORE 8 E 2 CP ORE 20 LONTANO DAI PASTI)
     Route: 048
     Dates: start: 20250211, end: 20250426
  3. ALPRAZOLAM [Concomitant]
     Active Substance: ALPRAZOLAM
     Indication: Product used for unknown indication
     Route: 065
  4. PANTOPRAZOLE [Concomitant]
     Active Substance: PANTOPRAZOLE
     Indication: Product used for unknown indication
     Route: 065
  5. Perindopril e Amlodipina DOC Generici [Concomitant]
     Indication: Product used for unknown indication
     Route: 065
  6. Calcio [Concomitant]
     Indication: Product used for unknown indication
     Route: 065
  7. POTASSIUM CHLORIDE [Concomitant]
     Active Substance: POTASSIUM CHLORIDE
     Indication: Product used for unknown indication
     Route: 065
  8. SILODOSIN [Concomitant]
     Active Substance: SILODOSIN
     Indication: Product used for unknown indication
     Route: 065
  9. PREDNISONE [Concomitant]
     Active Substance: PREDNISONE
     Indication: Product used for unknown indication
     Route: 065

REACTIONS (2)
  - Meningitis [Recovering/Resolving]
  - CSF test abnormal [Recovering/Resolving]

NARRATIVE: CASE EVENT DATE: 20250427
